FAERS Safety Report 17139554 (Version 1)
Quarter: 2019Q4

REPORT INFORMATION
  Report Type: Spontaneous
  Country: US (occurrence: US)
  Receive Date: 20191210
  Receipt Date: 20191210
  Transmission Date: 20200122
  Serious: Yes (Other)
  Sender: FDA-Public Use
  Company Number: None

PATIENT
  Age: 40 Year
  Sex: Female
  Weight: 68.04 kg

DRUGS (1)
  1. BUPRENORPHINE/NALOXONE 8/2MG TABLET [Suspect]
     Active Substance: BUPRENORPHINE\NALOXONE

REACTIONS (1)
  - Vomiting [None]

NARRATIVE: CASE EVENT DATE: 20191208
